FAERS Safety Report 17704425 (Version 2)
Quarter: 2020Q2

REPORT INFORMATION
  Report Type: Spontaneous
  Country: US (occurrence: US)
  Receive Date: 20200424
  Receipt Date: 20200626
  Transmission Date: 20200714
  Serious: Yes (Hospitalization)
  Sender: FDA-Public Use
  Company Number: US-BRISTOL-MYERS SQUIBB COMPANY-BMS-2020-032872

PATIENT
  Age: 66 Year
  Sex: Male

DRUGS (4)
  1. YERVOY [Suspect]
     Active Substance: IPILIMUMAB
     Indication: BLADDER CANCER
     Dosage: 264 MILLIGRAM TWICE MONTHLY
     Route: 042
  2. YERVOY [Suspect]
     Active Substance: IPILIMUMAB
     Indication: TRANSITIONAL CELL CARCINOMA METASTATIC
     Route: 065
  3. OPDIVO [Suspect]
     Active Substance: NIVOLUMAB
     Indication: BLADDER CANCER
     Dosage: 88 MILLIGRAM TWICE MONTHLY
     Route: 042
  4. OPDIVO [Suspect]
     Active Substance: NIVOLUMAB
     Indication: TRANSITIONAL CELL CARCINOMA METASTATIC
     Route: 065

REACTIONS (2)
  - Adverse event [Unknown]
  - Intentional product use issue [Unknown]

NARRATIVE: CASE EVENT DATE: 20200217
